FAERS Safety Report 5347553-7 (Version None)
Quarter: 2007Q2

REPORT INFORMATION
  Report Type: 
  Country: None (occurrence: None)
  Receive Date: 20070606
  Receipt Date: 20070531
  Transmission Date: 20071010
  Serious: Yes (Death)
  Sender: FDA-Public Use
  Company Number: FR-BAXTER-2007BH004572

PATIENT
  Age: 84 Year
  Sex: Male

DRUGS (10)
  1. DIANEAL PD-1 [Suspect]
     Indication: PERITONEAL DIALYSIS
     Route: 033
     Dates: start: 20070226, end: 20070321
  2. DESLORATADINE [Concomitant]
  3. SECTRAL [Concomitant]
  4. LESCOL [Concomitant]
  5. SUCRALFATE [Concomitant]
  6. ASPIRIN [Concomitant]
  7. NITRODERM [Concomitant]
  8. FOSRENOL [Concomitant]
  9. FUROSEMIDE [Concomitant]
  10. LOVENOX [Concomitant]

REACTIONS (1)
  - GASTROINTESTINAL HAEMORRHAGE [None]
